FAERS Safety Report 20799262 (Version 1)
Quarter: 2022Q2

REPORT INFORMATION
  Report Type: Report from Study
  Country: CN (occurrence: CN)
  Receive Date: 20220508
  Receipt Date: 20220508
  Transmission Date: 20220721
  Serious: Yes (Other)
  Sender: FDA-Public Use
  Company Number: CN-JNJFOC-20220450359

PATIENT

DRUGS (2)
  1. PALIPERIDONE [Suspect]
     Active Substance: PALIPERIDONE
     Indication: Psychotic disorder
     Route: 048
  2. RISPERIDONE [Suspect]
     Active Substance: RISPERIDONE
     Indication: Psychotic disorder
     Route: 065

REACTIONS (15)
  - Torsade de pointes [Unknown]
  - Electrocardiogram QT prolonged [Unknown]
  - Long QT syndrome [Unknown]
  - Cardiomyopathy [Unknown]
  - Cardiotoxicity [Unknown]
  - Myocardial ischaemia [Unknown]
  - Acute pulmonary oedema [Unknown]
  - Cardiogenic shock [Unknown]
  - Arrhythmia [Unknown]
  - Troponin increased [Unknown]
  - Cardiac septal hypertrophy [Unknown]
  - Cardiomyopathy alcoholic [Unknown]
  - Troponin I increased [Unknown]
  - Electrocardiogram U wave present [Unknown]
  - Electrocardiogram U-wave abnormality [Unknown]
